FAERS Safety Report 5092775-6 (Version None)
Quarter: 2006Q3

REPORT INFORMATION
  Report Type: 
  Country: None (occurrence: None)
  Receive Date: 20060825
  Receipt Date: 20060815
  Transmission Date: 20061208
  Serious: Yes (Hospitalization)
  Sender: FDA-Public Use
  Company Number: S06-USA-02768-01

PATIENT
  Age: 22 Year
  Sex: Male

DRUGS (3)
  1. LEXAPRO [Suspect]
  2. DEMEROL [Suspect]
     Indication: ABDOMINAL PAIN
     Dosage: 50 MG IM
     Route: 030
     Dates: start: 20060417
  3. TRILEPTAL [Concomitant]

REACTIONS (4)
  - ABDOMINAL PAIN UPPER [None]
  - BODY TEMPERATURE INCREASED [None]
  - DRUG INTERACTION [None]
  - VOMITING [None]
